FAERS Safety Report 23214012 (Version 2)
Quarter: 2024Q2

REPORT INFORMATION
  Report Type: Report from Study
  Country: US (occurrence: US)
  Receive Date: 20231121
  Receipt Date: 20240413
  Transmission Date: 20240716
  Serious: Yes (Other)
  Sender: FDA-Public Use
  Company Number: US-AstraZeneca-CH-00511250A

PATIENT
  Sex: Female

DRUGS (2)
  1. ULTOMIRIS [Suspect]
     Active Substance: RAVULIZUMAB-CWVZ
     Indication: Atypical haemolytic uraemic syndrome
     Dosage: UNK
     Route: 041
     Dates: start: 202009
  2. SOLIRIS [Suspect]
     Active Substance: ECULIZUMAB
     Indication: Atypical haemolytic uraemic syndrome
     Dosage: UNK
     Route: 065
     Dates: start: 201812

REACTIONS (8)
  - Type 2 diabetes mellitus [Unknown]
  - Chest injury [Recovering/Resolving]
  - Throat irritation [Recovered/Resolved]
  - Hypoaesthesia oral [Recovered/Resolved]
  - Cough [Recovered/Resolved]
  - Blood glucose increased [Recovered/Resolved]
  - Headache [Recovered/Resolved]
  - Fall [Recovering/Resolving]
